FAERS Safety Report 14201933 (Version 2)
Quarter: 2017Q4

REPORT INFORMATION
  Report Type: Spontaneous
  Country: BR (occurrence: BR)
  Receive Date: 20171117
  Receipt Date: 20171207
  Transmission Date: 20180321
  Serious: Yes (Death, Hospitalization, Other)
  Sender: FDA-Public Use
  Company Number: BR-ALEXION PHARMACEUTICALS INC-A201710653

PATIENT
  Age: 53 Year
  Sex: Male

DRUGS (2)
  1. SOLIRIS [Suspect]
     Active Substance: ECULIZUMAB
     Indication: PAROXYSMAL NOCTURNAL HAEMOGLOBINURIA
     Dosage: 600 MG, QW
     Route: 042
     Dates: start: 20150624, end: 20150812
  2. SOLIRIS [Suspect]
     Active Substance: ECULIZUMAB
     Dosage: 900 MG, Q2W
     Route: 042

REACTIONS (26)
  - Malaise [Unknown]
  - Headache [Recovering/Resolving]
  - Generalised oedema [Not Recovered/Not Resolved]
  - Oesophageal varices haemorrhage [Unknown]
  - Rash macular [Not Recovered/Not Resolved]
  - Dyspnoea [Unknown]
  - Sepsis [Unknown]
  - Abdominal distension [Unknown]
  - Decreased appetite [Not Recovered/Not Resolved]
  - Pyrexia [Not Recovered/Not Resolved]
  - Inappropriate schedule of drug administration [Not Recovered/Not Resolved]
  - Ocular icterus [Not Recovered/Not Resolved]
  - Haematemesis [Not Recovered/Not Resolved]
  - Intestinal haemorrhage [Not Recovered/Not Resolved]
  - Asthenia [Not Recovered/Not Resolved]
  - Jaundice [Not Recovered/Not Resolved]
  - General physical condition abnormal [Unknown]
  - Renal failure [Unknown]
  - Mobility decreased [Unknown]
  - Feeding disorder [Not Recovered/Not Resolved]
  - Dehydration [Unknown]
  - Hepatic cirrhosis [Unknown]
  - Abdominal pain [Not Recovered/Not Resolved]
  - Fatigue [Not Recovered/Not Resolved]
  - Death [Fatal]
  - Haemorrhage [Unknown]

NARRATIVE: CASE EVENT DATE: 20170912
